FAERS Safety Report 24290630 (Version 2)
Quarter: 2025Q4

REPORT INFORMATION
  Report Type: Spontaneous
  Country: US (occurrence: US)
  Receive Date: 20240906
  Receipt Date: 20251003
  Transmission Date: 20260118
  Serious: Yes (Other)
  Sender: INCYTE
  Company Number: US-INCYTE CORPORATION-2024IN009300

PATIENT
  Age: 82 Year
  Weight: 95.234 kg

DRUGS (6)
  1. JAKAFI [Suspect]
     Active Substance: RUXOLITINIB
     Indication: Malignant melanoma
     Dosage: 10 MILLIGRAM, TWICE DAILY FOR 3 DAYS, THEN ONCE DAILY FOR 4 DAYS
  2. JAKAFI [Suspect]
     Active Substance: RUXOLITINIB
     Indication: Polycythaemia vera
     Dosage: 10MG TWICE DAILY 3 TIMES A WEEK, 10MG ONCE DAILY ALL OTHER DAYS
  3. JAKAFI [Suspect]
     Active Substance: RUXOLITINIB
     Dosage: 10MG TWICE DAILY 3 TIMES A WEEK, 10MG ONCE DAILY ALL OTHER DAYS
  4. JAKAFI [Suspect]
     Active Substance: RUXOLITINIB
     Dosage: 10MG TWICE DAILY 3 TIMES A WEEK, 10MG ONCE DAILY ALL OTHER DAYS
  5. JAKAFI [Suspect]
     Active Substance: RUXOLITINIB
     Dosage: 10MG TWICE DAILY 3 TIMES A WEEK, 10MG ONCE DAILY ALL OTHER DAYS
  6. ELIQUIS [Concomitant]
     Active Substance: APIXABAN
     Indication: Product used for unknown indication
     Dosage: UNK
     Route: 065

REACTIONS (7)
  - Arthropathy [Unknown]
  - Diverticulitis [Unknown]
  - Diarrhoea [Recovering/Resolving]
  - Fall [Unknown]
  - Arthritis [Unknown]
  - Memory impairment [Unknown]
  - Off label use [Unknown]
